FAERS Safety Report 5638691-X (Version None)
Quarter: 2008Q1

REPORT INFORMATION
  Report Type: 
  Country: None (occurrence: None)
  Receive Date: 20080226
  Receipt Date: 20071101
  Transmission Date: 20080703
  Serious: No
  Sender: FDA-Public Use
  Company Number: A0691017A

PATIENT
  Age: 51 Year
  Sex: Female

DRUGS (4)
  1. IMITREX [Suspect]
     Indication: MIGRAINE
     Route: 058
  2. IMITREX [Suspect]
     Route: 048
  3. AMERGE [Suspect]
     Indication: MIGRAINE
     Route: 048
  4. NO CONCURRENT MEDICATION [Concomitant]

REACTIONS (5)
  - CHEST PAIN [None]
  - DRUG INEFFECTIVE [None]
  - HYPERVENTILATION [None]
  - PALPITATIONS [None]
  - THERAPEUTIC RESPONSE DECREASED [None]
